FAERS Safety Report 15989303 (Version 1)
Quarter: 2019Q1

REPORT INFORMATION
  Report Type: Spontaneous
  Country: US (occurrence: US)
  Receive Date: 20190220
  Receipt Date: 20190220
  Transmission Date: 20190418
  Serious: Yes (Life-Threatening)
  Sender: FDA-Public Use
  Company Number: None

PATIENT
  Age: 6 Year
  Sex: Male
  Weight: 21.15 kg

DRUGS (1)
  1. OSELRAMIVIR [Suspect]
     Active Substance: OSELTAMIVIR
     Indication: INFLUENZA
     Dosage: ?          QUANTITY:7.5 MILLILITERS;?
     Route: 048
     Dates: start: 20190218, end: 20190219

REACTIONS (3)
  - Lip swelling [None]
  - Swelling face [None]
  - Urticaria [None]

NARRATIVE: CASE EVENT DATE: 20190219
